FAERS Safety Report 14911564 (Version 3)
Quarter: 2018Q2

REPORT INFORMATION
  Report Type: Report from Study
  Country: DE (occurrence: DE)
  Receive Date: 20180518
  Receipt Date: 20180528
  Transmission Date: 20180711
  Serious: Yes (Hospitalization)
  Sender: FDA-Public Use
  Company Number: DE-BRISTOL-MYERS SQUIBB COMPANY-BMS-2018-044478

PATIENT
  Age: 76 Year
  Sex: Male

DRUGS (10)
  1. NEBIVOLOL. [Concomitant]
     Active Substance: NEBIVOLOL
     Indication: HYPERTENSION
     Dosage: 1.25 MG, QD
     Route: 065
     Dates: start: 20170828
  2. PEGFILGRASTIM [Suspect]
     Active Substance: PEGFILGRASTIM
     Indication: B-CELL LYMPHOMA
     Dosage: 6 MG, QCYCLE
     Route: 058
     Dates: start: 20180408
  3. L-THYROXIN                         /00068001/ [Concomitant]
     Active Substance: LEVOTHYROXINE
     Indication: THYROIDECTOMY
     Dosage: 37.5 MG, QD
     Route: 048
     Dates: start: 20160710
  4. CLOPIDOGREL [Concomitant]
     Active Substance: CLOPIDOGREL BISULFATE
     Indication: THROMBOSIS PROPHYLAXIS
     Dosage: 75 MG, UNK
     Route: 048
     Dates: start: 2017
  5. RITUXIMAB. [Suspect]
     Active Substance: RITUXIMAB
     Indication: B-CELL LYMPHOMA
     Dosage: 690 MG, QCYCLE
     Route: 042
     Dates: start: 20180404
  6. GEMCITABINE HYDROCHLORIDE. [Suspect]
     Active Substance: GEMCITABINE HYDROCHLORIDE
     Indication: B-CELL LYMPHOMA
     Dosage: 184.0 MG, QCYCLE
     Route: 042
     Dates: start: 20180405
  7. LYRICA [Concomitant]
     Active Substance: PREGABALIN
     Indication: PAIN
     Dosage: 75 MG, QD
     Route: 048
     Dates: start: 201803
  8. NIVOLUMAB [Suspect]
     Active Substance: NIVOLUMAB
     Indication: B-CELL LYMPHOMA
     Dosage: 220 MG, QCYCLE
     Route: 042
     Dates: start: 20180403
  9. OXALIPLATIN. [Suspect]
     Active Substance: OXALIPLATIN
     Indication: B-CELL LYMPHOMA
     Dosage: 182.5 MG, QCYCLE
     Route: 042
     Dates: start: 20180405
  10. PANTOZOL [Concomitant]
     Active Substance: PANTOPRAZOLE SODIUM
     Indication: PROPHYLAXIS
     Dosage: 40 MG, QD
     Route: 048
     Dates: start: 20140717

REACTIONS (1)
  - Vertigo [Recovered/Resolved]

NARRATIVE: CASE EVENT DATE: 20180513
